FAERS Safety Report 19053706 (Version 1)
Quarter: 2021Q1

REPORT INFORMATION
  Report Type: Spontaneous
  Country: US (occurrence: US)
  Receive Date: 20210324
  Receipt Date: 20210324
  Transmission Date: 20210420
  Serious: No
  Sender: FDA-Public Use
  Company Number: US-ASTRAZENECA-2021A127307

PATIENT
  Sex: Female

DRUGS (1)
  1. BREZTRI AEROSPHERE [Suspect]
     Active Substance: BUDESONIDE\FORMOTEROL\GLYCOPYRRONIUM
     Dosage: 2 PUFFS TWICE A DAY.
     Route: 055

REACTIONS (3)
  - Drug delivery system malfunction [Unknown]
  - Dyspnoea [Unknown]
  - Wrong technique in device usage process [Unknown]
